FAERS Safety Report 7690809-3 (Version None)
Quarter: 2011Q3

REPORT INFORMATION
  Report Type: 
  Country: None (occurrence: None)
  Receive Date: 20110816
  Receipt Date: 20110816
  Transmission Date: 20111222
  Serious: Yes (Other)
  Sender: FDA-Public Use
  Company Number: None

PATIENT
  Sex: Female

DRUGS (5)
  1. ESTRADIOL [Concomitant]
  2. CRESTOR [Concomitant]
  3. LEXAPRO [Concomitant]
  4. VALACYCLOVIR [Suspect]
     Indication: ANTIVIRAL PROPHYLAXIS
     Dosage: ONE QD PO
     Route: 048
     Dates: start: 20101203, end: 20110707
  5. PROMETRIUM [Concomitant]

REACTIONS (2)
  - DISEASE RECURRENCE [None]
  - PRODUCT SUBSTITUTION ISSUE [None]
